FAERS Safety Report 12159876 (Version 5)
Quarter: 2016Q2

REPORT INFORMATION
  Report Type: Report from Study
  Country: US (occurrence: US)
  Receive Date: 20160308
  Receipt Date: 20160429
  Transmission Date: 20160815
  Serious: Yes (Hospitalization)
  Sender: FDA-Public Use
  Company Number: US-B.I. PHARMACEUTICALS,INC./RIDGEFIELD-2015-BI-70786BP

PATIENT
  Sex: Male

DRUGS (1)
  1. OFEV [Suspect]
     Active Substance: NINTEDANIB
     Indication: IDIOPATHIC PULMONARY FIBROSIS
     Dosage: 300 MG
     Route: 048
     Dates: start: 20151112

REACTIONS (7)
  - Dyspnoea exertional [Unknown]
  - Product quality issue [Unknown]
  - Productive cough [Unknown]
  - Decreased appetite [Unknown]
  - Sinusitis [Unknown]
  - Cardiac operation [Unknown]
  - Diarrhoea [Unknown]
